FAERS Safety Report 25234822 (Version 1)
Quarter: 2025Q2

REPORT INFORMATION
  Report Type: Spontaneous
  Country: NO (occurrence: NO)
  Receive Date: 20250424
  Receipt Date: 20250424
  Transmission Date: 20250716
  Serious: Yes (Hospitalization, Other)
  Sender: CIPLA
  Company Number: NO-NOMAADVRE-RELISV-2025-Vnmg8j

PATIENT

DRUGS (4)
  1. RIVAROXABAN [Suspect]
     Active Substance: RIVAROXABAN
     Indication: Atrial fibrillation
     Dosage: 20 MILLIGRAM, QD (1 DAY), TABLET
     Route: 048
  2. ESOMEPRAZOLE [Concomitant]
     Active Substance: ESOMEPRAZOLE
     Indication: Product used for unknown indication
     Dosage: 20 MILLIGRAM, QD (1 DAY)
     Route: 065
  3. DIOVAN [Concomitant]
     Active Substance: VALSARTAN
     Indication: Product used for unknown indication
     Route: 065
  4. ROSUVASTATIN [Concomitant]
     Active Substance: ROSUVASTATIN
     Indication: Product used for unknown indication
     Dosage: 10 MILLIGRAM, QD (1 DAY)
     Route: 065

REACTIONS (3)
  - Dysarthria [Recovering/Resolving]
  - Facial paresis [Recovering/Resolving]
  - Basal ganglia haemorrhage [Recovering/Resolving]

NARRATIVE: CASE EVENT DATE: 20250329
